FAERS Safety Report 7843539-9 (Version None)
Quarter: 2011Q4

REPORT INFORMATION
  Report Type: 
  Country: None (occurrence: None)
  Receive Date: 20111025
  Receipt Date: 20111019
  Transmission Date: 20120403
  Serious: Yes (Other)
  Sender: FDA-Public Use
  Company Number: MX-ROCHE-1006538

PATIENT
  Sex: Female
  Weight: 56 kg

DRUGS (5)
  1. HERBAL NERVE TONIC LIQUID [Concomitant]
     Route: 048
  2. FOLIC ACID [Concomitant]
     Route: 048
     Dates: start: 20110917
  3. RANTUDIL [Concomitant]
     Route: 048
     Dates: start: 20110917
  4. BONIVA [Suspect]
     Indication: OSTEOPOROSIS
     Route: 048
     Dates: start: 20110917
  5. PRAVASTATIN [Concomitant]
     Indication: HYPERCHOLESTEROLAEMIA
     Route: 048
     Dates: start: 20110917

REACTIONS (1)
  - GINGIVITIS [None]
